FAERS Safety Report 19029709 (Version 1)
Quarter: 2021Q1

REPORT INFORMATION
  Report Type: Spontaneous
  Country: US (occurrence: US)
  Receive Date: 20210319
  Receipt Date: 20210319
  Transmission Date: 20210420
  Serious: Yes (Hospitalization, Other)
  Sender: FDA-Public Use
  Company Number: US-AUROBINDO-AUR-APL-2021-010594

PATIENT
  Age: 58 Year
  Sex: Male

DRUGS (5)
  1. CARBOPLATIN. [Suspect]
     Active Substance: CARBOPLATIN
     Indication: SKIN SQUAMOUS CELL CARCINOMA METASTATIC
     Dosage: UNK
     Route: 065
     Dates: start: 201901, end: 2019
  2. CETUXIMAB. [Suspect]
     Active Substance: CETUXIMAB
     Indication: SKIN SQUAMOUS CELL CARCINOMA METASTATIC
     Dosage: UNK
     Route: 065
     Dates: start: 201901
  3. TACROLIMUS. [Concomitant]
     Active Substance: TACROLIMUS
     Indication: IMMUNOSUPPRESSANT DRUG THERAPY
     Dosage: 0.5 MILLIGRAM, FOUR TIMES/DAY
     Route: 065
     Dates: start: 2006
  4. SIROLIMUS. [Concomitant]
     Active Substance: SIROLIMUS
     Indication: IMMUNOSUPPRESSANT DRUG THERAPY
     Dosage: 1 MILLIGRAM, EVERY OTHER DAY
     Route: 065
     Dates: start: 2006
  5. MYCOPHENOLATE MOFETIL. [Concomitant]
     Active Substance: MYCOPHENOLATE MOFETIL
     Indication: IMMUNOSUPPRESSANT DRUG THERAPY
     Dosage: 500 MILLIGRAM, TWO TIMES A DAY
     Route: 065
     Dates: start: 2006

REACTIONS (2)
  - Nausea [Unknown]
  - Vomiting [Unknown]

NARRATIVE: CASE EVENT DATE: 2019
